FAERS Safety Report 4968762-2 (Version None)
Quarter: 2006Q2

REPORT INFORMATION
  Report Type: 
  Country: None (occurrence: None)
  Receive Date: 20060411
  Receipt Date: 20060331
  Transmission Date: 20061013
  Serious: Yes (Death, Other)
  Sender: FDA-Public Use
  Company Number: CI-AVENTIS-200613602GDDC

PATIENT
  Age: 49 Year
  Sex: Female

DRUGS (3)
  1. TAXOTERE [Suspect]
     Indication: BREAST CANCER
     Dosage: DOSE: 120 MG
     Route: 042
     Dates: start: 20060222, end: 20060320
  2. SKILAX [Concomitant]
     Indication: CONSTIPATION
  3. SPASFON [Concomitant]

REACTIONS (2)
  - ABDOMINAL PAIN [None]
  - CIRCULATORY COLLAPSE [None]
